FAERS Safety Report 7156651-7 (Version None)
Quarter: 2010Q4

REPORT INFORMATION
  Report Type: 
  Country: None (occurrence: None)
  Receive Date: 20101214
  Receipt Date: 20100303
  Transmission Date: 20110411
  Serious: Yes (Hospitalization)
  Sender: FDA-Public Use
  Company Number: US-ASTRAZENECA-2005UW05619

PATIENT
  Age: 62 Year
  Sex: Female
  Weight: 65.8 kg

DRUGS (5)
  1. CRESTOR [Suspect]
     Indication: BLOOD CHOLESTEROL INCREASED
     Route: 048
     Dates: start: 20050407
  2. LIPITOR [Suspect]
     Indication: DYSLIPIDAEMIA
     Route: 048
     Dates: start: 20040101
  3. TRICOR [Concomitant]
     Route: 065
  4. VITAMINS [Concomitant]
     Route: 065
  5. LOW DOSE ASA [Concomitant]
     Route: 065

REACTIONS (4)
  - BONE MARROW FAILURE [None]
  - INTERVERTEBRAL DISC DISORDER [None]
  - PRURITUS [None]
  - STAPHYLOCOCCAL INFECTION [None]
